FAERS Safety Report 9481856 (Version 2)
Quarter: 2013Q3

REPORT INFORMATION
  Report Type: Spontaneous
  Country: US (occurrence: US)
  Receive Date: 20130828
  Receipt Date: 20130926
  Transmission Date: 20140515
  Serious: Yes (Death, Hospitalization, Other)
  Sender: FDA-Public Use
  Company Number: US-AMGEN-USASP2013059523

PATIENT
  Age: 82 Year
  Sex: Female

DRUGS (1)
  1. PROLIA [Suspect]
     Indication: OSTEOPOROSIS POSTMENOPAUSAL
     Route: 065

REACTIONS (26)
  - Intestinal obstruction [Unknown]
  - Acute respiratory failure [Recovered/Resolved]
  - Candida infection [Unknown]
  - Colostomy [Unknown]
  - Metabolic acidosis [Unknown]
  - Malnutrition [Unknown]
  - Abdominal pain [Unknown]
  - Nausea [Unknown]
  - Vomiting [Unknown]
  - Renal failure acute [Unknown]
  - Pleural effusion [Unknown]
  - Atelectasis [Unknown]
  - Hypernatraemia [Unknown]
  - Cardiac failure congestive [Unknown]
  - Sepsis [Unknown]
  - Ileus paralytic [Unknown]
  - Nephrosclerosis [Unknown]
  - Renal failure chronic [Unknown]
  - Chronic obstructive pulmonary disease [Unknown]
  - Pancreatitis [Unknown]
  - Enterococcus test positive [Unknown]
  - Post procedural infection [Fatal]
  - Streptococcal infection [Unknown]
  - Gastrointestinal disorder [Unknown]
  - Wound [Not Recovered/Not Resolved]
  - Fungal infection [Unknown]
